FAERS Safety Report 4650217-6 (Version None)
Quarter: 2005Q2

REPORT INFORMATION
  Report Type: 
  Country: None (occurrence: None)
  Receive Date: 20050428
  Receipt Date: 20050415
  Transmission Date: 20051028
  Serious: Yes (Hospitalization, Other)
  Sender: FDA-Public Use
  Company Number: KII-2005-0016104

PATIENT
  Age: 44 Year
  Sex: Male

DRUGS (12)
  1. MORPHINE SULFATE [Suspect]
     Indication: PAIN
     Dosage: SEE TEXT, ORAL
     Route: 048
  2. ACETAMINOPHEN [Suspect]
  3. ASPIRIN [Suspect]
     Indication: CARDIAC DISORDER
  4. ACETAMINOPHEN AND HYDROCODONE BITARTRATE [Concomitant]
  5. CYCLOBENZAPRINE HCL [Concomitant]
  6. INSULIN [Concomitant]
  7. VALPROIC ACID [Concomitant]
  8. GABAPENTIN [Concomitant]
  9. ISOSORBIDE (ISOSORBIDE) [Concomitant]
  10. SERUMLIPIDREDUCING AGENTS [Concomitant]
  11. SSRI [Concomitant]
  12. OTHER TYPE OF GASTROINTESTINAL PREPARATION [Concomitant]

REACTIONS (8)
  - BLOOD GLUCOSE INCREASED [None]
  - LETHARGY [None]
  - OVERDOSE [None]
  - OXYGEN SATURATION DECREASED [None]
  - RESPIRATORY RATE DECREASED [None]
  - SINUS TACHYCARDIA [None]
  - SNORING [None]
  - SOMNOLENCE [None]
